FAERS Safety Report 9299417 (Version 1)
Quarter: 2013Q2

REPORT INFORMATION
  Report Type: Spontaneous
  Country: CH (occurrence: CH)
  Receive Date: 20130520
  Receipt Date: 20130520
  Transmission Date: 20140414
  Serious: Yes (Other)
  Sender: FDA-Public Use
  Company Number: CH-BRISTOL-MYERS SQUIBB COMPANY-18919720

PATIENT
  Age: 36 Year
  Sex: Female

DRUGS (5)
  1. ABILIFY [Suspect]
     Indication: PSYCHOTIC DISORDER
  2. DALMADORM [Suspect]
  3. FLUCTINE [Suspect]
  4. LEXOTANIL [Suspect]
     Dosage: 1.5 MG IN RESERVE
  5. EUTHYROX [Suspect]
     Indication: HYPOTHYROIDISM
     Dosage: UNK - MAR2012: 100MICROGRAM/D;?THEREAFTER 125MICROGRAM/D

REACTIONS (3)
  - Pre-eclampsia [Unknown]
  - Pregnancy [Recovered/Resolved]
  - Live birth [Unknown]
